FAERS Safety Report 8019464 (Version 4)
Quarter: 2014Q2

REPORT INFORMATION
  Report Type: Report from Study
  Country: US (occurrence: US)
  Receive Date: 20110704
  Receipt Date: 20140612
  Transmission Date: 20141212
  Serious: Yes (Hospitalization)
  Sender: FDA-Public Use
  Company Number: US-BIOGENIDEC-2011BI023837

PATIENT
  Age: 55 Year
  Sex: Male

DRUGS (2)
  1. AVONEX [Suspect]
     Indication: MULTIPLE SCLEROSIS
     Route: 030
  2. AVONEX [Suspect]
     Indication: MULTIPLE SCLEROSIS
     Route: 030
     Dates: start: 20030630, end: 20101130

REACTIONS (7)
  - Coronary artery disease [Recovered/Resolved]
  - Multiple sclerosis relapse [Recovered/Resolved]
  - Mobility decreased [Unknown]
  - Inflammation [Unknown]
  - Blood glucose increased [Unknown]
  - Peripheral coldness [Not Recovered/Not Resolved]
  - Motor dysfunction [Not Recovered/Not Resolved]
